FAERS Safety Report 11227433 (Version 2)
Quarter: 2015Q3

REPORT INFORMATION
  Report Type: Spontaneous
  Country: US (occurrence: US)
  Receive Date: 20150630
  Receipt Date: 20150710
  Transmission Date: 20151125
  Serious: Yes (Life-Threatening)
  Sender: FDA-Public Use
  Company Number: US-BAYER-2015-363559

PATIENT
  Age: 70 Year
  Sex: Female

DRUGS (1)
  1. GADAVIST [Suspect]
     Active Substance: GADOBUTROL
     Indication: NUCLEAR MAGNETIC RESONANCE IMAGING
     Dosage: 7.5 ML, UNK
     Route: 042
     Dates: start: 20150620

REACTIONS (10)
  - Anaphylactic shock [None]
  - Rash [None]
  - Immediate post-injection reaction [None]
  - Hypoaesthesia [None]
  - Pruritus [None]
  - Sneezing [None]
  - Muscle tone disorder [None]
  - Face oedema [None]
  - Flushing [None]
  - Blood pressure systolic decreased [None]

NARRATIVE: CASE EVENT DATE: 20150620
